FAERS Safety Report 21474089 (Version 1)
Quarter: 2022Q4

REPORT INFORMATION
  Report Type: Spontaneous
  Country: US (occurrence: US)
  Receive Date: 20221018
  Receipt Date: 20221018
  Transmission Date: 20230113
  Serious: No
  Sender: FDA-Public Use
  Company Number: US-MYLANLABS-2022M1112411

PATIENT
  Sex: Female
  Weight: 79.38 kg

DRUGS (1)
  1. SEMGLEE (INSULIN GLARGINE-YFGN) [Suspect]
     Active Substance: INSULIN GLARGINE-YFGN
     Indication: Type 2 diabetes mellitus
     Dosage: 30 INTERNATIONAL UNIT, QD ONCE AT NIGHT
     Route: 058

REACTIONS (5)
  - Device defective [Unknown]
  - Device issue [Unknown]
  - Fatigue [Unknown]
  - Blood glucose abnormal [Unknown]
  - Weight increased [Unknown]
